FAERS Safety Report 18472253 (Version 1)
Quarter: 2020Q4

REPORT INFORMATION
  Report Type: Spontaneous
  Country: BR (occurrence: BR)
  Receive Date: 20201106
  Receipt Date: 20201106
  Transmission Date: 20210114
  Serious: Yes (Other)
  Sender: FDA-Public Use
  Company Number: BR-ROCHE-2709134

PATIENT
  Age: 77 Year
  Sex: Female

DRUGS (9)
  1. LUCENTIS [Suspect]
     Active Substance: RANIBIZUMAB
     Dosage: UNK (3 MONTHLY DOSES AND FOLLOW UP AFTER EACH DOSE)
     Route: 050
     Dates: start: 202008
  2. LUCENTIS [Suspect]
     Active Substance: RANIBIZUMAB
     Route: 050
     Dates: start: 201410
  3. LUCENTIS [Suspect]
     Active Substance: RANIBIZUMAB
     Route: 050
     Dates: start: 201512
  4. LUCENTIS [Suspect]
     Active Substance: RANIBIZUMAB
     Route: 050
     Dates: start: 202005, end: 202007
  5. LUCENTIS [Suspect]
     Active Substance: RANIBIZUMAB
     Route: 050
     Dates: start: 201408
  6. LUCENTIS [Suspect]
     Active Substance: RANIBIZUMAB
     Route: 050
     Dates: start: 201810
  7. LUCENTIS [Suspect]
     Active Substance: RANIBIZUMAB
     Indication: NEOVASCULAR AGE-RELATED MACULAR DEGENERATION
     Route: 050
     Dates: start: 201402
  8. LUCENTIS [Suspect]
     Active Substance: RANIBIZUMAB
     Route: 050
     Dates: start: 201503
  9. LUCENTIS [Suspect]
     Active Substance: RANIBIZUMAB
     Route: 050
     Dates: start: 201903

REACTIONS (10)
  - Macular fibrosis [Unknown]
  - Subretinal fibrosis [Unknown]
  - Cataract subcapsular [Unknown]
  - Blindness [Unknown]
  - Retinal thickening [Unknown]
  - Visual acuity reduced [Unknown]
  - Retinal oedema [Unknown]
  - Osteoporosis [Unknown]
  - Macular pigmentation [Unknown]
  - Subretinal fluid [Unknown]

NARRATIVE: CASE EVENT DATE: 201901
